FAERS Safety Report 7445267-0 (Version None)
Quarter: 2011Q2

REPORT INFORMATION
  Report Type: 
  Country: None (occurrence: None)
  Receive Date: 20110429
  Receipt Date: 20110323
  Transmission Date: 20111010
  Serious: Yes (Hospitalization, Disabling, Other)
  Sender: FDA-Public Use
  Company Number: US-BAYER-201034282NA

PATIENT
  Age: 40 Year
  Sex: Female
  Weight: 83 kg

DRUGS (7)
  1. YASMIN [Suspect]
     Indication: CONTRACEPTION
     Route: 048
     Dates: start: 20020101, end: 20060915
  2. MULTIVITAMIN PREPARATION + MINERAL SUPPLEMENT [Concomitant]
     Dosage: UNK UNK, QD
  3. CORRECTOL [Concomitant]
  4. SYNTHROID [Concomitant]
     Indication: HYPOTHYROIDISM
     Dosage: UNK UNK, QD
  5. YASMIN [Suspect]
     Dosage: UNK
  6. PROZAC [Concomitant]
     Indication: DEPRESSION
     Dosage: UNK UNK, QD
     Dates: start: 19950101
  7. MILK OF MAGNESIA TAB [Concomitant]
     Dosage: UNK
     Dates: start: 20060601

REACTIONS (8)
  - RECTAL HAEMORRHAGE [None]
  - ABDOMINAL DISTENSION [None]
  - ABDOMINAL PAIN [None]
  - COLITIS ISCHAEMIC [None]
  - NAUSEA [None]
  - VOMITING [None]
  - IRRITABLE BOWEL SYNDROME [None]
  - ENTEROCOLITIS HAEMORRHAGIC [None]
